FAERS Safety Report 9516395 (Version 3)
Quarter: 2013Q3

REPORT INFORMATION
  Report Type: Report from Study
  Country: US (occurrence: US)
  Receive Date: 20130911
  Receipt Date: 20130925
  Transmission Date: 20140515
  Serious: Yes (Hospitalization, Other)
  Sender: FDA-Public Use
  Company Number: GXBR2013US001666

PATIENT
  Age: 59 Year
  Sex: Male
  Weight: 78.5 kg

DRUGS (2)
  1. ENOXAPARIN SODIUM [Suspect]
     Dosage: 80 MG, BID
     Route: 058
     Dates: start: 20121215
  2. ACETAMINOPHEN [Concomitant]
     Dosage: 500 MG, Q6H PRN
     Route: 048

REACTIONS (14)
  - Small intestine carcinoma [Not Recovered/Not Resolved]
  - Hypokalaemia [Recovered/Resolved]
  - Renal failure acute [Recovered/Resolved]
  - Duodenal stenosis [Recovering/Resolving]
  - Vomiting [Recovered/Resolved]
  - Abdominal distension [Recovering/Resolving]
  - Abdominal tenderness [Recovering/Resolving]
  - Nausea [Recovered/Resolved]
  - Asthenia [Recovered/Resolved]
  - Weight decreased [Unknown]
  - Dehydration [Recovered/Resolved]
  - Oesophagitis [Unknown]
  - Balance disorder [Recovered/Resolved]
  - Affect lability [Unknown]
